FAERS Safety Report 6134121-2 (Version None)
Quarter: 2009Q1

REPORT INFORMATION
  Report Type: 
  Country: None (occurrence: None)
  Receive Date: 20090326
  Receipt Date: 20090311
  Transmission Date: 20090719
  Serious: Yes (Hospitalization)
  Sender: FDA-Public Use
  Company Number: FR-GENENTECH-279535

PATIENT
  Sex: Male

DRUGS (7)
  1. AVASTIN [Suspect]
     Indication: DRUG USE FOR UNKNOWN INDICATION
     Dosage: 5 MG/KG, SINGLE
     Route: 042
     Dates: start: 20090112, end: 20090112
  2. ELOXATIN [Suspect]
     Indication: DRUG USE FOR UNKNOWN INDICATION
     Dosage: 85 MG/M2, UNK
     Route: 042
     Dates: start: 20090113, end: 20090113
  3. ONDANSETRON HCL [Suspect]
     Indication: DRUG USE FOR UNKNOWN INDICATION
     Dosage: 8 MG, SINGLE
     Route: 042
     Dates: start: 20090112, end: 20090112
  4. GEMZAR [Suspect]
     Indication: DRUG USE FOR UNKNOWN INDICATION
     Dosage: 1000 MG/M2, UNK
     Route: 042
     Dates: start: 20090112, end: 20090112
  5. POLARAMINE [Concomitant]
     Indication: DRUG USE FOR UNKNOWN INDICATION
  6. AZANTAC [Concomitant]
     Indication: DRUG USE FOR UNKNOWN INDICATION
  7. SOLU-MEDROL [Concomitant]
     Indication: DRUG USE FOR UNKNOWN INDICATION

REACTIONS (1)
  - RASH [None]
